FAERS Safety Report 10214008 (Version 1)
Quarter: 2014Q2

REPORT INFORMATION
  Report Type: Spontaneous
  Country: US (occurrence: None)
  Receive Date: 20140602
  Receipt Date: 20140602
  Transmission Date: 20141212
  Serious: Yes (Other)
  Sender: FDA-Public Use
  Company Number: None

PATIENT
  Age: 56 Year
  Sex: Female
  Weight: 79.38 kg

DRUGS (1)
  1. OXYBUTYNIN FOR DITROPAN [Suspect]
     Indication: POLLAKIURIA
     Dosage: AT BEDTIME, BY MOUTH
     Dates: start: 20110802, end: 20110902

REACTIONS (7)
  - Pain in extremity [None]
  - Malaise [None]
  - Peripheral swelling [None]
  - Arthritis [None]
  - Insomnia [None]
  - Pain in extremity [None]
  - Hypokinesia [None]
